FAERS Safety Report 20743561 (Version 1)
Quarter: 2022Q2

REPORT INFORMATION
  Report Type: Report from Study
  Country: US (occurrence: US)
  Receive Date: 20220425
  Receipt Date: 20220425
  Transmission Date: 20220721
  Serious: No
  Sender: FDA-Public Use
  Company Number: US-Ipsen Biopharmaceuticals, Inc.-2022-11111

PATIENT
  Sex: Female

DRUGS (1)
  1. SOMATULINE DEPOT [Suspect]
     Active Substance: LANREOTIDE ACETATE
     Indication: Acromegaly
     Dosage: 120 MG/ 0.5 ML EVERY 4 WEEKS
     Route: 058

REACTIONS (14)
  - Cholelithiasis [Recovering/Resolving]
  - Goitre [Recovering/Resolving]
  - Dry skin [Recovering/Resolving]
  - Alopecia [Recovering/Resolving]
  - Menopause [Recovering/Resolving]
  - Diarrhoea [Recovering/Resolving]
  - Physical deconditioning [Recovering/Resolving]
  - Mass [Recovering/Resolving]
  - Fatigue [Recovered/Resolved]
  - Mental fatigue [Recovered/Resolved]
  - Depression [Recovered/Resolved]
  - Condition aggravated [Recovering/Resolving]
  - Haemorrhoids [Recovering/Resolving]
  - Product dose omission issue [Unknown]
